FAERS Safety Report 13036350 (Version 3)
Quarter: 2017Q4

REPORT INFORMATION
  Report Type: Report from Study
  Country: NL (occurrence: NL)
  Receive Date: 20161216
  Receipt Date: 20171009
  Transmission Date: 20180320
  Serious: Yes (Death, Hospitalization, Other)
  Sender: FDA-Public Use
  Company Number: NL-TEVA-719645ROM

PATIENT
  Age: 75 Year
  Sex: Female

DRUGS (8)
  1. PARACETAMOL [Concomitant]
     Active Substance: ACETAMINOPHEN
     Indication: PAIN
     Route: 048
     Dates: start: 20160101
  2. PAROXETINE. [Concomitant]
     Active Substance: PAROXETINE
     Indication: DEPRESSION
     Dosage: 20 MILLIGRAM DAILY;
     Route: 048
     Dates: start: 20160429
  3. LONQUEX 6MG SOLUTION FOR INJECTION [Suspect]
     Active Substance: LIPEGFILGRASTIM
     Indication: PROPHYLAXIS
     Dosage: LAST ADMINISTRATION DATE BEFORE AE OCCURENCE 23-AUG-2016
     Route: 058
     Dates: start: 20160728, end: 20161020
  4. CYCLOPHOSPHAMIDE. [Suspect]
     Active Substance: CYCLOPHOSPHAMIDE
     Indication: NON-HODGKIN^S LYMPHOMA
     Dosage: LAST ADMINISTRATION DATE BEFORE AE OCCURENCE 12-SEP-2016
     Route: 042
     Dates: start: 20160526, end: 20161130
  5. DURATEARS [Concomitant]
     Active Substance: MINERAL OIL EMULSION\PETROLATUM
     Indication: DRY EYE
     Route: 050
     Dates: start: 20160727
  6. METHOTREXATE. [Suspect]
     Active Substance: METHOTREXATE
     Indication: NON-HODGKIN^S LYMPHOMA
     Dosage: LAST ADMINISTRATION DATE BEFORE AE OCCURENCE 12-SEP-2016
     Route: 042
     Dates: start: 20160526, end: 20161130
  7. FLUOROURACIL. [Suspect]
     Active Substance: FLUOROURACIL
     Indication: NON-HODGKIN^S LYMPHOMA
     Dosage: LAST ADMINISTRATION DATE BEFORE AE OCCURENCE 12-SEP-2016
     Route: 042
     Dates: start: 20160526, end: 20161130
  8. TEMAZEPAM. [Concomitant]
     Active Substance: TEMAZEPAM
     Indication: INSOMNIA
     Dosage: 10 MILLIGRAM DAILY;
     Route: 048
     Dates: start: 20160429

REACTIONS (2)
  - Pyrexia [Recovered/Resolved]
  - Death [Fatal]

NARRATIVE: CASE EVENT DATE: 20161010
